FAERS Safety Report 17839231 (Version 1)
Quarter: 2020Q2

REPORT INFORMATION
  Report Type: Report from Study
  Country: None (occurrence: CO)
  Receive Date: 20200529
  Receipt Date: 20200529
  Transmission Date: 20200714
  Serious: Yes (Other)
  Sender: FDA-Public Use
  Company Number: CO-ABBVIE-19K-036-3188543-00

PATIENT
  Sex: Male
  Weight: 64 kg

DRUGS (1)
  1. HUMIRA [Suspect]
     Active Substance: ADALIMUMAB
     Indication: HIDRADENITIS
     Route: 058
     Dates: start: 20190315

REACTIONS (3)
  - Hidradenitis [Not Recovered/Not Resolved]
  - Drug ineffective [Unknown]
  - Axillary mass [Recovering/Resolving]

NARRATIVE: CASE EVENT DATE: 2019
